FAERS Safety Report 7267667-4 (Version None)
Quarter: 2011Q1

REPORT INFORMATION
  Report Type: 
  Country: None (occurrence: None)
  Receive Date: 20110201
  Receipt Date: 20100922
  Transmission Date: 20110831
  Serious: Yes (Other)
  Sender: FDA-Public Use
  Company Number: JP-ROCHE-733952

PATIENT
  Sex: Female
  Weight: 8.9 kg

DRUGS (1)
  1. OSELTAMIVIR [Suspect]
     Indication: INFLUENZA
     Dosage: DOSE FORM: ORAL FORMATION(NOT OTHERWISE SPECIFIED)
     Route: 064
     Dates: start: 20091227, end: 20091231

REACTIONS (2)
  - EPILEPSY [None]
  - NORMAL NEWBORN [None]
